FAERS Safety Report 20421266 (Version 2)
Quarter: 2022Q1

REPORT INFORMATION
  Report Type: Other
  Country: US (occurrence: None)
  Receive Date: 20220203
  Receipt Date: 20220210
  Transmission Date: 20220424
  Serious: Yes (Other)
  Sender: FDA-Public Use
  Company Number: US-ROCHE-3014267

PATIENT
  Age: 77 Year
  Sex: Male

DRUGS (8)
  1. ESBRIET [Suspect]
     Active Substance: PIRFENIDONE
     Indication: Idiopathic pulmonary fibrosis
     Dosage: TAKE 1 TABLET BY MOUTH 3 TIMES A DAY WITH MEALS FOR 7 DAYS. THEN, TAKE 2 TABLETS BY MOUTH 3 TIMES A
     Route: 048
     Dates: start: 202201
  2. INHALER (UNK INGREDIENTS) [Concomitant]
  3. TESSALON [Concomitant]
     Active Substance: BENZONATATE
     Indication: Cough
     Route: 048
  4. DELTASONE [Concomitant]
     Active Substance: PREDNISONE
     Dosage: TAKE 4 TABLETS DAILY WITH FOOD FOR 1 WEEK THEN 2 TABLETS DAILY WITH FOOD FOR 2 WEEKS THEN 1 TABLET D
  5. DELTASONE [Concomitant]
     Active Substance: PREDNISONE
     Dosage: TAKE 1 TABLET BY MOUTH WITH FOOD EVERY MONDAY, WEDNESDAY AND FRIDAY FOUR WEEKS AND THEN STOP
  6. XARELTO [Concomitant]
     Active Substance: RIVAROXABAN
     Route: 048
  7. BETAPACE [Concomitant]
     Active Substance: SOTALOL HYDROCHLORIDE
     Route: 048
  8. FLOMAX [Concomitant]
     Active Substance: TAMSULOSIN HYDROCHLORIDE
     Route: 048

REACTIONS (1)
  - Urinary retention [Recovered/Resolved]

NARRATIVE: CASE EVENT DATE: 20220101
